FAERS Safety Report 5137775-2 (Version None)
Quarter: 2006Q4

REPORT INFORMATION
  Report Type: 
  Country: None (occurrence: None)
  Receive Date: 20061030
  Receipt Date: 20060110
  Transmission Date: 20070319
  Serious: No
  Sender: FDA-Public Use
  Company Number: US-GLAXOSMITHKLINE-A0588584A

PATIENT
  Age: 60 Year
  Sex: Female
  Weight: 77.3 kg

DRUGS (8)
  1. ADVAIR HFA [Suspect]
     Indication: ASTHMA
     Dosage: 1SPR TWICE PER DAY
     Route: 055
  2. DUONEB [Concomitant]
  3. PREDNISONE TAB [Concomitant]
  4. COMBIVENT [Concomitant]
     Dosage: 2U AS REQUIRED
  5. ALTACE [Concomitant]
     Dosage: 1U PER DAY
  6. GLIPIZIDE [Concomitant]
     Dosage: 2U TWICE PER DAY
  7. PROTONIX [Concomitant]
     Dosage: 1U PER DAY
  8. HYDROCHLOROTHIAZIDE [Concomitant]
     Dosage: 1U PER DAY

REACTIONS (3)
  - DRUG INEFFECTIVE [None]
  - OVERDOSE [None]
  - PHARMACEUTICAL PRODUCT COMPLAINT [None]
